FAERS Safety Report 4369497-X (Version None)
Quarter: 2004Q2

REPORT INFORMATION
  Report Type: 
  Country: None (occurrence: None)
  Receive Date: 20040603
  Receipt Date: 20040519
  Transmission Date: 20050107
  Serious: Yes (Hospitalization)
  Sender: FDA-Public Use
  Company Number: 200412047FR

PATIENT
  Age: 90 Year
  Sex: Female

DRUGS (2)
  1. LASILIX FAIBLE [Suspect]
     Route: 048
     Dates: end: 20040330
  2. TRIATEC [Suspect]
     Route: 048

REACTIONS (6)
  - DEHYDRATION [None]
  - GENERAL PHYSICAL HEALTH DETERIORATION [None]
  - HYPERKALAEMIA [None]
  - HYPONATRAEMIA [None]
  - METABOLIC ACIDOSIS [None]
  - RENAL FAILURE ACUTE [None]
